FAERS Safety Report 20226001 (Version 1)
Quarter: 2021Q4

REPORT INFORMATION
  Report Type: Other
  Country: IT (occurrence: None)
  Receive Date: 20211224
  Receipt Date: 20211224
  Transmission Date: 20220303
  Serious: Yes (Other)
  Sender: FDA-Public Use
  Company Number: IT-Saptalis Pharmaceuticals,LLC-000154

PATIENT
  Age: 77 Year
  Sex: Female

DRUGS (4)
  1. TRIAMCINOLONE [Suspect]
     Active Substance: TRIAMCINOLONE
     Indication: Cystoid macular oedema
     Dosage: 03 SUB-TENON^S TRIAMCINOLONE INJECTIONS
     Route: 031
  2. NEPAFENAC [Suspect]
     Active Substance: NEPAFENAC
     Indication: Cystoid macular oedema
     Dosage: NEPAFENAC 0.3% ONE DROP/DAY
  3. INDOMETHACIN [Suspect]
     Active Substance: INDOMETHACIN
     Indication: Cystoid macular oedema
     Dosage: 50 MG OF INDOMETHACIN TO BE ASSUMED TWICE/DAY.
     Route: 048
  4. BETAMETHASONE\CHLORAMPHENICOL [Suspect]
     Active Substance: BETAMETHASONE\CHLORAMPHENICOL
     Indication: Product used for unknown indication
     Dosage: BETAMETHASONE/CHLORAMPHENICOL DROPS FOUR TIMES/DAY FOR 20 DAYS.

REACTIONS (2)
  - Cystoid macular oedema [Recovered/Resolved]
  - Disease recurrence [Recovered/Resolved]
